FAERS Safety Report 9286523 (Version 1)
Quarter: 2013Q2

REPORT INFORMATION
  Report Type: Spontaneous
  Country: US (occurrence: US)
  Receive Date: 20130513
  Receipt Date: 20130513
  Transmission Date: 20140414
  Serious: No
  Sender: FDA-Public Use
  Company Number: US-MYLANLABS-2012S1016244

PATIENT
  Sex: Male

DRUGS (1)
  1. INDOMETHACIN [Suspect]
     Indication: GOUT
     Route: 048
     Dates: start: 201208

REACTIONS (2)
  - Dizziness [Not Recovered/Not Resolved]
  - Chills [Not Recovered/Not Resolved]
